FAERS Safety Report 16876169 (Version 1)
Quarter: 2019Q4

REPORT INFORMATION
  Report Type: Spontaneous
  Country: US (occurrence: US)
  Receive Date: 20191002
  Receipt Date: 20191002
  Transmission Date: 20200122
  Serious: No
  Sender: FDA-Public Use
  Company Number: US-GW PHARMA-201907USGW2691

PATIENT

DRUGS (14)
  1. EPIDIOLEX [Suspect]
     Active Substance: CANNABIDIOL
     Dosage: 8.87 MG/KG, 300 MILLIGRAM, BID
     Route: 048
     Dates: start: 2019
  2. EPIDIOLEX [Suspect]
     Active Substance: CANNABIDIOL
     Indication: FOCAL DYSCOGNITIVE SEIZURES
     Dosage: 0.74 MG/KG, 50 MILLIGRAM, QD
     Route: 048
     Dates: start: 20190219, end: 201902
  3. EPIDIOLEX [Suspect]
     Active Substance: CANNABIDIOL
     Dosage: 2.22 MG/KG, 150 MILLIGRAM, QD
     Route: 048
     Dates: start: 201903, end: 201903
  4. EPIDIOLEX [Suspect]
     Active Substance: CANNABIDIOL
     Dosage: 1.48 MG/KG, 100 MILLIGRAM, QD
     Route: 048
     Dates: start: 201902, end: 201903
  5. EPIDIOLEX [Suspect]
     Active Substance: CANNABIDIOL
     Dosage: 4.44 MG/KG, 300 MILLIGRAM, QD
     Route: 048
     Dates: start: 201903, end: 201904
  6. EPIDIOLEX [Suspect]
     Active Substance: CANNABIDIOL
     Dosage: 5.18 MG/KG, 350 MILLIGRAM, QD
     Route: 048
     Dates: start: 201904, end: 201904
  7. EPIDIOLEX [Suspect]
     Active Substance: CANNABIDIOL
     Dosage: 5.92 MG/KG, 400 MILLIGRAM, QD
     Route: 048
     Dates: start: 201904, end: 201904
  8. EPIDIOLEX [Suspect]
     Active Substance: CANNABIDIOL
     Dosage: 2.96 MG/KG, 200 MILLIGRAM, QD
     Route: 048
     Dates: start: 201903, end: 201903
  9. EPIDIOLEX [Suspect]
     Active Substance: CANNABIDIOL
     Dosage: 3.70 MG/KG, 250 MILLIGRAM, QD
     Route: 048
     Dates: start: 201903, end: 201903
  10. EPIDIOLEX [Suspect]
     Active Substance: CANNABIDIOL
     Dosage: 6.66 MG/KG, 450 MILLIGRAM, QD
     Route: 048
     Dates: start: 201904, end: 201904
  11. EPIDIOLEX [Suspect]
     Active Substance: CANNABIDIOL
     Dosage: 8.14 MG/KG, 550 MILLIGRAM, QD
     Route: 048
     Dates: start: 201905, end: 201905
  12. EPIDIOLEX [Suspect]
     Active Substance: CANNABIDIOL
     Dosage: 8.87 MG/KG, 600 MILLIGRAM, QD
     Route: 048
     Dates: start: 201905, end: 2019
  13. PHENYTOIN. [Suspect]
     Active Substance: PHENYTOIN
     Indication: PRODUCT USED FOR UNKNOWN INDICATION
     Dosage: 300 MILLIGRAM, QD (AT BEDTIME)
     Route: 065
  14. EPIDIOLEX [Suspect]
     Active Substance: CANNABIDIOL
     Dosage: 7.40 MG/KG, 500 MILLIGRAM, QD
     Route: 048
     Dates: start: 201904, end: 2019

REACTIONS (3)
  - Anticonvulsant drug level decreased [Unknown]
  - Seizure [Unknown]
  - Abnormal behaviour [Unknown]

NARRATIVE: CASE EVENT DATE: 2019
